FAERS Safety Report 7645511-0 (Version None)
Quarter: 2011Q3

REPORT INFORMATION
  Report Type: 
  Country: None (occurrence: None)
  Receive Date: 20110729
  Receipt Date: 20110727
  Transmission Date: 20111222
  Serious: Yes (Hospitalization, Other)
  Sender: FDA-Public Use
  Company Number: US-ALLERGAN-0801884US

PATIENT
  Age: 36 Year
  Sex: Female
  Weight: 54.422 kg

DRUGS (1)
  1. BOTOX COSMETIC [Suspect]
     Indication: SKIN WRINKLING
     Dosage: 33.3 UNITS, SINGLE
     Route: 030
     Dates: start: 20080110, end: 20080110

REACTIONS (38)
  - FEELING HOT [None]
  - PYREXIA [None]
  - WRONG TECHNIQUE IN DRUG USAGE PROCESS [None]
  - ANGIOEDEMA [None]
  - HYPOAESTHESIA [None]
  - ANXIETY [None]
  - RASH [None]
  - OEDEMA MOUTH [None]
  - CHOKING SENSATION [None]
  - BURNING SENSATION [None]
  - DYSAESTHESIA [None]
  - INCORRECT ROUTE OF DRUG ADMINISTRATION [None]
  - MUSCULAR WEAKNESS [None]
  - HYPERSENSITIVITY [None]
  - HYPERHIDROSIS [None]
  - LEUKOPLAKIA ORAL [None]
  - TRIGEMINAL NERVE DISORDER [None]
  - ANAPHYLACTIC REACTION [None]
  - VISUAL IMPAIRMENT [None]
  - TEMPERATURE INTOLERANCE [None]
  - TOXICITY TO VARIOUS AGENTS [None]
  - EUSTACHIAN TUBE DYSFUNCTION [None]
  - APHASIA [None]
  - FACE OEDEMA [None]
  - PHOTOPHOBIA [None]
  - HEADACHE [None]
  - DYSPHAGIA [None]
  - PARALYSIS [None]
  - FEELING ABNORMAL [None]
  - SINUSITIS BACTERIAL [None]
  - IMMUNE SYSTEM DISORDER [None]
  - DRUG HYPERSENSITIVITY [None]
  - DISSOCIATION [None]
  - THROAT TIGHTNESS [None]
  - INFLUENZA LIKE ILLNESS [None]
  - PHARYNGITIS STREPTOCOCCAL [None]
  - FACIAL PAIN [None]
  - DERMATITIS [None]
